FAERS Safety Report 14785236 (Version 1)
Quarter: 2018Q2

REPORT INFORMATION
  Report Type: Report from Study
  Country: FR (occurrence: FR)
  Receive Date: 20180420
  Receipt Date: 20180420
  Transmission Date: 20180711
  Serious: Yes (Hospitalization)
  Sender: FDA-Public Use
  Company Number: FR-PFIZER INC-2018153730

PATIENT
  Age: 63 Year
  Sex: Female
  Weight: 61 kg

DRUGS (7)
  1. VINCRISTINE SULFATE. [Suspect]
     Active Substance: VINCRISTINE SULFATE
     Dosage: INDUCTION I (DAY 1)
     Dates: start: 20171229, end: 20171229
  2. METHOTREXATE. [Suspect]
     Active Substance: METHOTREXATE
     Dosage: INDUCTION II (DAY 2)
     Route: 037
     Dates: start: 20180127
  3. INSULIN [Concomitant]
     Active Substance: INSULIN NOS
     Dosage: UNK
  4. APROVEL [Concomitant]
     Active Substance: IRBESARTAN
     Dosage: UNK
  5. INOTUZUMAB OZOGAMICIN [Suspect]
     Active Substance: INOTUZUMAB OZOGAMICIN
     Dosage: INDUCTION I (DAY 1)
     Dates: start: 20171229, end: 20171229
  6. INOTUZUMAB OZOGAMICIN [Suspect]
     Active Substance: INOTUZUMAB OZOGAMICIN
     Dosage: INDUCTION II (DAY 8)
     Dates: start: 20180202
  7. INOTUZUMAB OZOGAMICIN [Suspect]
     Active Substance: INOTUZUMAB OZOGAMICIN
     Dosage: INDUCTION II (DAY 1)
     Dates: start: 20180126, end: 20180126

REACTIONS (1)
  - Transient ischaemic attack [Not Recovered/Not Resolved]

NARRATIVE: CASE EVENT DATE: 20180408
